FAERS Safety Report 5299385-6 (Version None)
Quarter: 2007Q1

REPORT INFORMATION
  Report Type: 
  Country: None (occurrence: None)
  Receive Date: 20070201
  Receipt Date: 20061030
  Transmission Date: 20070707
  Serious: No
  Sender: FDA-Public Use
  Company Number: 2006PV024107

PATIENT
  Age: 75 Year
  Sex: Male
  Weight: 108.4097 kg

DRUGS (15)
  1. BYETTA [Suspect]
     Indication: DIABETES MELLITUS NON-INSULIN-DEPENDENT
     Dosage: 5 MCG; BID; SC
     Route: 058
     Dates: start: 20061019
  2. ASPIRIN [Concomitant]
  3. FOLIC ACID [Concomitant]
  4. SYNTHROID [Concomitant]
  5. POTASSIUM ACETATE [Concomitant]
  6. PLAVIX [Concomitant]
  7. ACIPHEX [Concomitant]
  8. ASCORBIC ACID [Concomitant]
  9. VITAMIN B-12 [Concomitant]
  10. MICRONASE [Concomitant]
  11. COREG [Concomitant]
  12. HYTRIN [Concomitant]
  13. AVANDIA [Concomitant]
  14. ZESTRIL [Concomitant]
  15. TRICOR [Concomitant]

REACTIONS (2)
  - FAECES DISCOLOURED [None]
  - FAECES HARD [None]
